FAERS Safety Report 8575500-3 (Version None)
Quarter: 2012Q3

REPORT INFORMATION
  Report Type: 
  Country: None (occurrence: None)
  Receive Date: 20120807
  Receipt Date: 20120801
  Transmission Date: 20120928
  Serious: Yes (Hospitalization)
  Sender: FDA-Public Use
  Company Number: JP-ELI_LILLY_AND_COMPANY-JP201206004425

PATIENT
  Sex: Female
  Weight: 74 kg

DRUGS (12)
  1. LASIX [Concomitant]
     Dosage: 20 MG, QD
     Route: 048
     Dates: start: 20120507
  2. OLOPATADINE HCL [Concomitant]
     Dosage: 5 MG, QD
     Route: 048
     Dates: start: 20120507
  3. VERAPAMIL HCL [Concomitant]
     Dosage: 80 MG, QD
     Route: 048
     Dates: start: 20120507
  4. SUNRYTHM [Concomitant]
     Dosage: 50 MG, QD
     Route: 048
     Dates: start: 20120507, end: 20120522
  5. FORTEO [Suspect]
     Indication: OSTEOPOROSIS
     Dosage: 20 UG, QD
     Route: 058
     Dates: start: 20120515, end: 20120629
  6. FAMOTIDINE [Concomitant]
     Dosage: 20 MG, UNK
     Route: 048
     Dates: start: 20120507
  7. ALDACTONE [Concomitant]
     Dosage: 25 MG, QD
     Route: 048
     Dates: start: 20120507
  8. VOLTAREN                                /SCH/ [Concomitant]
     Route: 065
  9. LYRICA [Concomitant]
     Dosage: 25 MG, QD
     Route: 048
     Dates: start: 20120518, end: 20120614
  10. LIMARMONE [Concomitant]
     Dosage: 15 MG, QD
     Route: 048
     Dates: start: 20120507
  11. GASMOTIN [Concomitant]
     Dosage: 15 MG, QD
     Route: 048
     Dates: start: 20120507
  12. LOXONIN [Concomitant]
     Dosage: 180 MG, UNK
     Route: 048
     Dates: start: 20120507

REACTIONS (2)
  - PANCREATITIS ACUTE [None]
  - BLOOD PRESSURE DECREASED [None]
